FAERS Safety Report 8023764-7 (Version None)
Quarter: 2012Q1

REPORT INFORMATION
  Report Type: 
  Country: None (occurrence: None)
  Receive Date: 20120105
  Receipt Date: 20111227
  Transmission Date: 20120608
  Serious: Yes (Hospitalization, Other)
  Sender: FDA-Public Use
  Company Number: US-ELI_LILLY_AND_COMPANY-US200806003387

PATIENT
  Sex: Female

DRUGS (4)
  1. METOPROLOL SUCCINATE [Concomitant]
     Dosage: UNK, BID
  2. PROZAC [Suspect]
     Indication: DEPRESSION
     Dosage: 20 MG, UNK
  3. PLAVIX [Concomitant]
     Dosage: UNK, QD
  4. ALTACE [Concomitant]
     Dosage: 5 MG, UNK

REACTIONS (6)
  - GASTRIC BYPASS [None]
  - AFFECTIVE DISORDER [None]
  - FEELING ABNORMAL [None]
  - MYOCARDIAL INFARCTION [None]
  - VENTRICULAR FIBRILLATION [None]
  - VITAMIN B12 DEFICIENCY [None]
